FAERS Safety Report 14093172 (Version 1)
Quarter: 2017Q4

REPORT INFORMATION
  Report Type: Spontaneous
  Country: US (occurrence: US)
  Receive Date: 20171016
  Receipt Date: 20171016
  Transmission Date: 20180321
  Serious: Yes (Other)
  Sender: FDA-Public Use
  Company Number: US-PFIZER INC-2017438221

PATIENT
  Age: 30 Year
  Sex: Female
  Weight: 86.18 kg

DRUGS (3)
  1. CHANTIX [Suspect]
     Active Substance: VARENICLINE TARTRATE
     Dosage: 1 MG, 2X/DAY ( 1MG IN THE MORNING AND NIGHT)
     Route: 048
     Dates: start: 2017, end: 2017
  2. CHANTIX [Suspect]
     Active Substance: VARENICLINE TARTRATE
     Dosage: 0.5 MG, 2X/DAY ( 0.5MG MORNING AND NIGHT)
     Route: 048
     Dates: start: 2017, end: 2017
  3. CHANTIX [Suspect]
     Active Substance: VARENICLINE TARTRATE
     Indication: SMOKING CESSATION THERAPY
     Dosage: 0.5 MG, 1X/DAY (FIRST 3 DAYS SHE TOOK)
     Route: 048
     Dates: start: 201709, end: 2017

REACTIONS (7)
  - Gout [Recovering/Resolving]
  - Renal failure [Unknown]
  - Irritability [Not Recovered/Not Resolved]
  - Renal disorder [Unknown]
  - Flank pain [Not Recovered/Not Resolved]
  - Abnormal dreams [Not Recovered/Not Resolved]
  - Anxiety [Unknown]

NARRATIVE: CASE EVENT DATE: 201709
